FAERS Safety Report 20939841 (Version 1)
Quarter: 2022Q2

REPORT INFORMATION
  Report Type: Spontaneous
  Country: CN (occurrence: CN)
  Receive Date: 20220609
  Receipt Date: 20220609
  Transmission Date: 20220720
  Serious: Yes (Hospitalization, Other)
  Sender: FDA-Public Use
  Company Number: CN-LUPIN PHARMACEUTICALS INC.-2022-08409

PATIENT
  Age: 49 Year
  Sex: Female

DRUGS (8)
  1. HYDROXYCHLOROQUINE [Suspect]
     Active Substance: HYDROXYCHLOROQUINE
     Indication: Lupus nephritis
     Dosage: 0.1 GRAM, BID
     Route: 065
  2. HYDROXYCHLOROQUINE [Suspect]
     Active Substance: HYDROXYCHLOROQUINE
     Dosage: 0.2 GRAM, BID
     Route: 065
     Dates: start: 202005
  3. METHOTREXATE [Suspect]
     Active Substance: METHOTREXATE
     Indication: Lupus nephritis
     Dosage: 10 MILLIGRAM QW (ONCE A WEEK)
     Route: 065
  4. MYCOPHENOLATE MOFETIL [Suspect]
     Active Substance: MYCOPHENOLATE MOFETIL
     Indication: Lupus nephritis
     Dosage: 0.25 MILLIGRAM, BID
     Route: 065
     Dates: start: 202005
  5. RABIES VACCINE [Suspect]
     Active Substance: RABIES VACCINE
     Indication: Animal scratch
     Dosage: UNK (FIRST DOSE)
     Route: 065
     Dates: start: 20210328
  6. RABIES VACCINE [Suspect]
     Active Substance: RABIES VACCINE
     Dosage: UNK (SECOND DOSE)
     Route: 065
     Dates: start: 20210404
  7. RABIES VACCINE [Suspect]
     Active Substance: RABIES VACCINE
     Dosage: UNK (THIRD DOSE)
     Route: 065
     Dates: start: 20210406
  8. RABIES VACCINE [Suspect]
     Active Substance: RABIES VACCINE
     Dosage: UNK (FOURTH DOSE)
     Route: 065
     Dates: start: 20210412

REACTIONS (1)
  - Thrombotic thrombocytopenic purpura [Recovered/Resolved]

NARRATIVE: CASE EVENT DATE: 20210101
